FAERS Safety Report 6004551-8 (Version None)
Quarter: 2008Q4

REPORT INFORMATION
  Report Type: 
  Country: None (occurrence: None)
  Receive Date: 20081216
  Receipt Date: 20081209
  Transmission Date: 20090506
  Serious: Yes (Hospitalization, Other)
  Sender: FDA-Public Use
  Company Number: US-PURDUE-USA_2008_0036197

PATIENT
  Age: 46 Year
  Sex: Male

DRUGS (3)
  1. OXYCONTIN [Suspect]
     Indication: OSTEONECROSIS
     Dosage: UNK MG, UNK
     Route: 048
  2. OXYCONTIN [Suspect]
     Dosage: 60 MG, BID
     Route: 048
     Dates: start: 20080301, end: 20081101
  3. METHADONE HCL [Suspect]
     Indication: PAIN
     Dosage: UNK MG, UNK
     Route: 048
     Dates: end: 20081206

REACTIONS (3)
  - CHEST PAIN [None]
  - MYOCARDIAL INFARCTION [None]
  - VOMITING [None]
